FAERS Safety Report 23107359 (Version 1)
Quarter: 2023Q4

REPORT INFORMATION
  Report Type: Spontaneous
  Country: US (occurrence: US)
  Receive Date: 20231026
  Receipt Date: 20231026
  Transmission Date: 20240109
  Serious: No
  Sender: FDA-Public Use
  Company Number: US-ALKEM LABORATORIES LIMITED-US-ALKEM-2023-10646

PATIENT
  Age: 33 Year
  Sex: Female

DRUGS (3)
  1. LACOSAMIDE [Suspect]
     Active Substance: LACOSAMIDE
     Indication: Ictal bradycardia syndrome
     Dosage: 200 MILLIGRAM, BID (TWICE DAILY)
     Route: 065
  2. LEVETIRACETAM [Suspect]
     Active Substance: LEVETIRACETAM
     Indication: Ictal bradycardia syndrome
     Dosage: 1500 MILLIGRAM, BID (TWICE A DAY)
     Route: 065
  3. CENOBAMATE [Suspect]
     Active Substance: CENOBAMATE
     Indication: Ictal bradycardia syndrome
     Dosage: 100 MILLIGRAM, OD (ONCE DAILY)
     Route: 065

REACTIONS (1)
  - Therapy non-responder [Unknown]
